FAERS Safety Report 8310756-3 (Version None)
Quarter: 2012Q2

REPORT INFORMATION
  Report Type: 
  Country: None (occurrence: None)
  Receive Date: 20120425
  Receipt Date: 20120410
  Transmission Date: 20120825
  Serious: Yes (Life-Threatening, Hospitalization, Other)
  Sender: FDA-Public Use
  Company Number: FR-PFIZER INC-2012093336

PATIENT
  Age: 25 Year
  Sex: Male

DRUGS (5)
  1. LYRICA [Suspect]
     Indication: SUICIDE ATTEMPT
     Dosage: DAILY INTAKE-SINGLE DOSE
     Route: 048
     Dates: start: 20120307, end: 20120307
  2. ATARAX [Suspect]
     Indication: SUICIDE ATTEMPT
     Dosage: DAILY DOSE-SINGLE INTAKE
     Route: 048
     Dates: start: 20120307, end: 20120307
  3. ALCOHOL [Suspect]
     Dosage: UNK
     Dates: start: 20120307
  4. ACETAMINOPHEN [Suspect]
     Indication: SUICIDE ATTEMPT
     Dosage: DAILY DOSE-SINGLE INTAKE
     Route: 048
     Dates: start: 20120307, end: 20120307
  5. CLONAZEPAM [Suspect]
     Indication: SUICIDE ATTEMPT
     Dosage: DAILY DOSE-SINGLE INTAKE
     Route: 048
     Dates: start: 20120307, end: 20120307

REACTIONS (6)
  - SUICIDE ATTEMPT [None]
  - METABOLIC ACIDOSIS [None]
  - COMA [None]
  - CYTOLYTIC HEPATITIS [None]
  - HYPERKALAEMIA [None]
  - CEREBRAL ISCHAEMIA [None]
